FAERS Safety Report 7354816-2 (Version None)
Quarter: 2011Q1

REPORT INFORMATION
  Report Type: 
  Country: None (occurrence: None)
  Receive Date: 20110311
  Receipt Date: 20110311
  Transmission Date: 20110831
  Serious: Yes (Death)
  Sender: FDA-Public Use
  Company Number: None

PATIENT
  Sex: Female
  Weight: 68.0396 kg

DRUGS (1)
  1. NYSTATIN [Suspect]
     Indication: FUNGAL INFECTION
     Dosage: 1 AT BEDTIME 2 WEEKS
     Dates: start: 20110216

REACTIONS (3)
  - MUSCLE SPASMS [None]
  - DRUG EXPOSURE DURING PREGNANCY [None]
  - ABORTION SPONTANEOUS [None]
